FAERS Safety Report 10427630 (Version 1)
Quarter: 2014Q3

REPORT INFORMATION
  Report Type: Spontaneous
  Country: JP (occurrence: JP)
  Receive Date: 20140903
  Receipt Date: 20140903
  Transmission Date: 20150326
  Serious: Yes (Other)
  Sender: FDA-Public Use
  Company Number: PHHY2008JP045342

PATIENT
  Age: 40 Year
  Sex: Female

DRUGS (2)
  1. EXJADE [Suspect]
     Active Substance: DEFERASIROX
     Indication: BURKITT^S LYMPHOMA
     Dosage: 12 UKN, UNK
     Dates: start: 20080601
  2. EXJADE [Suspect]
     Active Substance: DEFERASIROX
     Dosage: UNK UKN, UNK

REACTIONS (2)
  - Liver disorder [Unknown]
  - Concomitant disease aggravated [Unknown]
